FAERS Safety Report 16765852 (Version 1)
Quarter: 2019Q3

REPORT INFORMATION
  Report Type: Spontaneous
  Country: US (occurrence: US)
  Receive Date: 20190903
  Receipt Date: 20190903
  Transmission Date: 20191005
  Serious: Yes (Other)
  Sender: FDA-Public Use
  Company Number: US-ACCORD-153522

PATIENT
  Sex: Male

DRUGS (1)
  1. HYDROCHLOROTHIAZIDE. [Suspect]
     Active Substance: HYDROCHLOROTHIAZIDE
     Indication: HYPERTENSION
     Dosage: FREQUENCY: ONCE A DAY, STRENGTH 25 MG

REACTIONS (3)
  - Mydriasis [Recovered/Resolved]
  - Orthostatic hypotension [Recovered/Resolved]
  - Hypertension [Recovered/Resolved]
